FAERS Safety Report 17317173 (Version 2)
Quarter: 2020Q1

REPORT INFORMATION
  Report Type: Spontaneous
  Country: GB (occurrence: GB)
  Receive Date: 20200124
  Receipt Date: 20200205
  Transmission Date: 20200409
  Serious: Yes (Other)
  Sender: FDA-Public Use
  Company Number: PHHY2019GB107248

PATIENT
  Age: 45 Year
  Sex: Male

DRUGS (10)
  1. TRUVADA [Concomitant]
     Active Substance: EMTRICITABINE\TENOFOVIR DISOPROXIL FUMARATE
     Indication: PRODUCT USED FOR UNKNOWN INDICATION
     Dosage: UNK
     Route: 065
  2. RALTEGRAVIR. [Interacting]
     Active Substance: RALTEGRAVIR
     Dosage: 600 MG, BID
     Route: 048
     Dates: end: 201901
  3. RALTEGRAVIR. [Interacting]
     Active Substance: RALTEGRAVIR
     Dosage: 1200 MG, QD
     Route: 048
     Dates: start: 201710, end: 201901
  4. RALTEGRAVIR. [Interacting]
     Active Substance: RALTEGRAVIR
     Dosage: 1200 MG, QD
     Route: 048
     Dates: start: 20180326, end: 20181212
  5. RALTEGRAVIR. [Interacting]
     Active Substance: RALTEGRAVIR
     Indication: HIV INFECTION
     Dosage: 400 MG, BID
     Route: 048
  6. VALPROATE [Suspect]
     Active Substance: VALPROIC ACID
     Indication: HIV INFECTION
     Dosage: 2.5 G NOCTE
     Route: 048
     Dates: start: 201707
  7. RALTEGRAVIR. [Interacting]
     Active Substance: RALTEGRAVIR
     Dosage: 800 MG, BID
     Route: 048
  8. OLANZAPINE. [Concomitant]
     Active Substance: OLANZAPINE
     Indication: SCHIZOPHRENIA
     Dosage: 10 MG, QD
     Route: 048
     Dates: start: 201611
  9. VALPROATE [Interacting]
     Active Substance: VALPROIC ACID
     Indication: SCHIZOPHRENIA
  10. QUETIAPINE FUMARATE. [Concomitant]
     Active Substance: QUETIAPINE FUMARATE
     Indication: SCHIZOPHRENIA
     Dosage: 300 MG, QD
     Route: 048
     Dates: start: 201803

REACTIONS (3)
  - Drug level decreased [Unknown]
  - Drug interaction [Unknown]
  - Virologic failure [Recovered/Resolved]
